FAERS Safety Report 4438474-2 (Version None)
Quarter: 2004Q3

REPORT INFORMATION
  Report Type: 
  Country: None (occurrence: None)
  Receive Date: 20040728
  Receipt Date: 20040323
  Transmission Date: 20050211
  Serious: No
  Sender: FDA-Public Use
  Company Number: USA040362897

PATIENT
  Age: 4 Year
  Sex: Female
  Weight: 18 kg

DRUGS (4)
  1. STRATTERA [Suspect]
     Indication: ATTENTION DEFICIT/HYPERACTIVITY DISORDER
     Dosage: 25 MG/1 IN THE MORNING
     Dates: start: 20030101
  2. CLONIDINE HCL [Concomitant]
  3. FLONASE [Concomitant]
  4. ALBUTEROL [Concomitant]

REACTIONS (1)
  - ATTENTION DEFICIT/HYPERACTIVITY DISORDER [None]
